FAERS Safety Report 22289545 (Version 10)
Quarter: 2025Q1

REPORT INFORMATION
  Report Type: Spontaneous
  Country: US (occurrence: US)
  Receive Date: 20230505
  Receipt Date: 20250224
  Transmission Date: 20250409
  Serious: No
  Sender: PFIZER
  Company Number: US-PFIZER INC-PV202300078976

PATIENT
  Age: 78 Year
  Sex: Female
  Weight: 68 kg

DRUGS (2)
  1. IBRANCE [Suspect]
     Active Substance: PALBOCICLIB
     Indication: Breast cancer female
     Route: 048
     Dates: start: 20230901
  2. FASLODEX [Concomitant]
     Active Substance: FULVESTRANT
     Dosage: 500 MG, MONTHLY (QMO)

REACTIONS (5)
  - Dysphonia [Not Recovered/Not Resolved]
  - Cough [Recovered/Resolved]
  - Nasopharyngitis [Recovered/Resolved]
  - Neoplasm progression [Not Recovered/Not Resolved]
  - Illness [Unknown]
